FAERS Safety Report 6715103-6 (Version None)
Quarter: 2010Q2

REPORT INFORMATION
  Report Type: 
  Country: None (occurrence: None)
  Receive Date: 20100507
  Receipt Date: 20100428
  Transmission Date: 20101027
  Serious: Yes (Hospitalization, Disabling)
  Sender: FDA-Public Use
  Company Number: FR-ABBOTT-09P-056-0496606-00

PATIENT
  Age: 35 Year
  Sex: Male

DRUGS (13)
  1. NORVIR [Suspect]
     Indication: HIV INFECTION
     Dates: start: 20081216, end: 20090102
  2. REYATAZ [Suspect]
     Indication: HIV INFECTION
     Dates: start: 20081216, end: 20090102
  3. TRUVADA [Suspect]
     Indication: HIV INFECTION
     Dates: start: 20081216, end: 20090102
  4. TRUVADA [Suspect]
     Dates: start: 20100123
  5. BACTRIM BALSAMICO [Suspect]
     Indication: DRUG USE FOR UNKNOWN INDICATION
     Dates: start: 20081206, end: 20090102
  6. BACTRIM BALSAMICO [Suspect]
     Dates: start: 20100123
  7. IMOVANE [Suspect]
     Indication: DRUG USE FOR UNKNOWN INDICATION
     Dates: start: 20081218, end: 20081231
  8. MEDROL [Suspect]
     Indication: DRUG USE FOR UNKNOWN INDICATION
     Dates: start: 20081210, end: 20081231
  9. KALETRA [Concomitant]
     Indication: DRUG USE FOR UNKNOWN INDICATION
     Dates: start: 20090123
  10. CORTICOSTEROIDS [Concomitant]
     Indication: DRUG USE FOR UNKNOWN INDICATION
     Dates: end: 20081230
  11. ATARAX [Concomitant]
     Indication: DRUG USE FOR UNKNOWN INDICATION
     Dates: end: 20081224
  12. RALTEGRAVIR [Concomitant]
     Indication: DRUG USE FOR UNKNOWN INDICATION
     Dates: start: 20090123
  13. ENFUVIRTIDE [Concomitant]
     Indication: DRUG USE FOR UNKNOWN INDICATION
     Dates: start: 20090123

REACTIONS (4)
  - ARTHRALGIA [None]
  - DEMYELINATING POLYNEUROPATHY [None]
  - MYALGIA [None]
  - PYREXIA [None]
